FAERS Safety Report 5376359-8 (Version None)
Quarter: 2007Q3

REPORT INFORMATION
  Report Type: 
  Country: None (occurrence: None)
  Receive Date: 20070702
  Receipt Date: 20070620
  Transmission Date: 20080115
  Serious: Yes (Disabling)
  Sender: FDA-Public Use
  Company Number: FR-GILEAD-2007-0012501

PATIENT
  Age: 56 Year
  Sex: Male
  Weight: 75 kg

DRUGS (4)
  1. TRUVADA [Suspect]
     Indication: HIV INFECTION
     Route: 048
     Dates: start: 20070116
  2. KALETRA [Suspect]
     Indication: HIV INFECTION
     Route: 048
     Dates: start: 20070116
  3. ACTOS [Concomitant]
     Indication: TYPE 2 DIABETES MELLITUS
     Dates: start: 20060101
  4. LIPANTHYL [Concomitant]
     Indication: DYSLIPIDAEMIA

REACTIONS (3)
  - CEREBROVASCULAR ACCIDENT [None]
  - HYPERTRIGLYCERIDAEMIA [None]
  - LIPIDS INCREASED [None]
